FAERS Safety Report 15283426 (Version 1)
Quarter: 2018Q3

REPORT INFORMATION
  Report Type: Spontaneous
  Country: US (occurrence: US)
  Receive Date: 20180816
  Receipt Date: 20180816
  Transmission Date: 20181010
  Serious: No
  Sender: FDA-Public Use
  Company Number: US-PFIZER INC-2018327623

PATIENT
  Age: 84 Year
  Sex: Female
  Weight: 60.33 kg

DRUGS (1)
  1. LYRICA [Suspect]
     Active Substance: PREGABALIN
     Indication: DIABETIC NEPHROPATHY
     Dosage: 150 MG, ONCE A DAY (AT BEDTIME)
     Route: 048

REACTIONS (2)
  - Condition aggravated [Unknown]
  - Diabetic neuropathy [Unknown]
